FAERS Safety Report 5781714-8 (Version None)
Quarter: 2008Q2

REPORT INFORMATION
  Report Type: 
  Country: None (occurrence: None)
  Receive Date: 20080623
  Receipt Date: 20070724
  Transmission Date: 20081010
  Serious: No
  Sender: FDA-Public Use
  Company Number: US-ASTRAZENECA-2007UW17919

PATIENT
  Age: 73 Year
  Sex: Female

DRUGS (6)
  1. RHINOCORT [Suspect]
     Indication: SINUSITIS
     Route: 045
     Dates: start: 20070723
  2. TRAMADOL HCL [Concomitant]
  3. BENADRYL [Concomitant]
  4. DIOVAN [Concomitant]
  5. ASPIRIN [Concomitant]
  6. NEURONTIN [Concomitant]

REACTIONS (3)
  - INSOMNIA [None]
  - NASAL MUCOSAL DISORDER [None]
  - SUFFOCATION FEELING [None]
